FAERS Safety Report 7387445-5 (Version None)
Quarter: 2011Q1

REPORT INFORMATION
  Report Type: 
  Country: None (occurrence: None)
  Receive Date: 20110331
  Receipt Date: 20110324
  Transmission Date: 20110831
  Serious: Yes (Life-Threatening, Hospitalization)
  Sender: FDA-Public Use
  Company Number: US-ELI_LILLY_AND_COMPANY-US201103004607

PATIENT
  Sex: Male
  Weight: 73.424 kg

DRUGS (16)
  1. MAGNESIUM SULFATE [Concomitant]
     Dosage: 2 G, UNK
     Route: 042
  2. METOPROLOL [Concomitant]
     Dosage: 25 MG, 2/D
     Route: 048
  3. ADVAIR DISKUS 100/50 [Concomitant]
     Dosage: UNK, 2/D
     Route: 055
  4. SODIUM PHOSPHATE [Concomitant]
     Dosage: 12 D/F, UNK
     Route: 042
  5. HUMULIN R [Suspect]
     Indication: HYPOGLYCAEMIA
     Dosage: UNK, AS NEEDED
     Route: 058
     Dates: start: 20110305
  6. ACETYLCYSTEINE [Concomitant]
     Dosage: 2 ML, EVERY 4 HRS
     Route: 055
  7. DUONEB [Concomitant]
     Dosage: 3 ML, AS NEEDED
     Route: 055
  8. KETALAR [Concomitant]
     Dosage: 15 MG, UNK
     Route: 042
  9. IBUPROFEN [Concomitant]
     Dosage: 600 MG, UNK
     Route: 048
  10. OXYCODONE [Concomitant]
     Dosage: 10 MG, UNK
     Route: 048
  11. ALBUTEROL [Concomitant]
     Dosage: 90 UG, EVERY 6 HRS
  12. ACETAMINOPHEN [Concomitant]
     Dosage: 650 MG, UNK
     Route: 048
  13. CEFAZOLIN [Concomitant]
     Dosage: 1 G, UNK
     Route: 042
  14. HEPARIN SODIUM [Concomitant]
     Indication: THROMBOSIS PROPHYLAXIS
     Dosage: 5000 U, EVERY 8 HRS
     Route: 058
     Dates: start: 20110305
  15. CALCIUM GLUCONATE [Concomitant]
     Dosage: 1 G, UNK
     Route: 042
  16. COSYNTROPIN [Concomitant]
     Dosage: 0.25 MG, UNK
     Route: 042

REACTIONS (2)
  - HYPOGLYCAEMIC UNCONSCIOUSNESS [None]
  - WRONG DRUG ADMINISTERED [None]
